FAERS Safety Report 4916021-6 (Version None)
Quarter: 2006Q1

REPORT INFORMATION
  Report Type: 
  Country: None (occurrence: None)
  Receive Date: 20060217
  Receipt Date: 20060208
  Transmission Date: 20060701
  Serious: Yes (Hospitalization)
  Sender: FDA-Public Use
  Company Number: FR-ABBOTT-06P-056-0324498-00

PATIENT
  Age: 93 Year
  Sex: Female
  Weight: 40 kg

DRUGS (10)
  1. CLARITHROMYCIN [Suspect]
     Indication: GASTRIC ULCER HAEMORRHAGE
     Route: 048
     Dates: start: 20060112, end: 20060119
  2. CLARITHROMYCIN [Suspect]
     Indication: HELICOBACTER INFECTION
  3. AMOXICILLIN [Suspect]
     Indication: GASTRIC ULCER HAEMORRHAGE
     Route: 048
     Dates: start: 20060112, end: 20060119
  4. AMOXICILLIN [Suspect]
     Indication: HELICOBACTER INFECTION
  5. NORFLOXACIN [Suspect]
     Indication: URINARY TRACT INFECTION
     Route: 048
     Dates: start: 20060103, end: 20060111
  6. FUROSEMIDE [Concomitant]
     Indication: HYPERTENSION
     Route: 048
     Dates: end: 20060102
  7. LOSARTAN POTASSIUM [Concomitant]
     Indication: HYPERTENSION
     Route: 048
     Dates: end: 20060102
  8. ACETAMINOPHEN [Concomitant]
     Indication: DRUG USE FOR UNKNOWN INDICATION
     Dates: end: 20060117
  9. OMEPRAZOLE [Concomitant]
     Indication: DRUG USE FOR UNKNOWN INDICATION
     Dates: end: 20060113
  10. OMEPRAZOLE [Concomitant]
     Dates: start: 20060113

REACTIONS (3)
  - EOSINOPHILIA [None]
  - HENOCH-SCHONLEIN PURPURA [None]
  - HYPOTENSION [None]
